FAERS Safety Report 5716155-2 (Version None)
Quarter: 2008Q2

REPORT INFORMATION
  Report Type: 
  Country: None (occurrence: None)
  Receive Date: 20080423
  Receipt Date: 20080414
  Transmission Date: 20081010
  Serious: Yes (Other)
  Sender: FDA-Public Use
  Company Number: APP200800289

PATIENT
  Age: 74 Year
  Sex: Male
  Weight: 154 kg

DRUGS (4)
  1. HEPARIN SODIUM [Suspect]
     Indication: CORONARY ARTERY BYPASS
     Dosage: SEE IMAGE
     Route: 042
     Dates: start: 20080331, end: 20080331
  2. HEPARIN SODIUM [Suspect]
     Indication: CORONARY ARTERY BYPASS
     Dosage: SEE IMAGE
     Route: 042
     Dates: start: 20080331, end: 20080331
  3. HEPARIN SODIUM [Suspect]
     Indication: CORONARY ARTERY BYPASS
     Dosage: SEE IMAGE
     Route: 042
     Dates: start: 20080331, end: 20080331
  4. HEPARIN [Concomitant]

REACTIONS (1)
  - DRUG EFFECT DECREASED [None]
